FAERS Safety Report 9349033 (Version 1)
Quarter: 2013Q2

REPORT INFORMATION
  Report Type: Report from Study
  Country: US (occurrence: US)
  Receive Date: 20130614
  Receipt Date: 20130614
  Transmission Date: 20140414
  Serious: Yes (Hospitalization)
  Sender: FDA-Public Use
  Company Number: US-JNJFOC-20130604242

PATIENT
  Sex: Female

DRUGS (5)
  1. REMICADE [Suspect]
     Indication: PRODUCT USED FOR UNKNOWN INDICATION
     Route: 042
  2. PREDNISONE [Suspect]
     Indication: ASTHMA
     Route: 065
     Dates: start: 20130428
  3. PREDNISONE [Suspect]
     Indication: VOCAL CORD DISORDER
     Route: 065
     Dates: start: 20130428
  4. AMITRIPTYLINE [Suspect]
     Indication: ARTHRALGIA
     Route: 065
     Dates: start: 2013, end: 201304
  5. AMITRIPTYLINE [Suspect]
     Indication: MYALGIA
     Route: 065
     Dates: start: 2013, end: 201304

REACTIONS (4)
  - Vocal cord disorder [Unknown]
  - Asthma [Unknown]
  - Myalgia [Unknown]
  - Arthralgia [Unknown]
